FAERS Safety Report 5738898-7 (Version None)
Quarter: 2008Q2

REPORT INFORMATION
  Report Type: 
  Country: None (occurrence: None)
  Receive Date: 20080515
  Receipt Date: 20080512
  Transmission Date: 20081010
  Serious: Yes (Death)
  Sender: FDA-Public Use
  Company Number: PHHY2008JP07789

PATIENT
  Age: 30 Year
  Sex: Male

DRUGS (1)
  1. VOLTAREN [Suspect]
     Dosage: 25 MG
     Route: 054
     Dates: start: 20020301, end: 20020301

REACTIONS (2)
  - PANCYTOPENIA [None]
  - SEPSIS [None]
